FAERS Safety Report 11203925 (Version 6)
Quarter: 2015Q4

REPORT INFORMATION
  Report Type: Spontaneous
  Country: US (occurrence: US)
  Receive Date: 20150619
  Receipt Date: 20151124
  Transmission Date: 20160304
  Serious: Yes (Other)
  Sender: FDA-Public Use
  Company Number: US-GLAXOSMITHKLINE-US2015086454

PATIENT
  Sex: Male

DRUGS (1)
  1. ANORO ELLIPTA [Suspect]
     Active Substance: UMECLIDINIUM BROMIDE\VILANTEROL TRIFENATATE
     Indication: CHRONIC OBSTRUCTIVE PULMONARY DISEASE
     Dosage: 1 PUFF(S), QD
     Route: 055
     Dates: start: 20150616

REACTIONS (6)
  - Product expiration date issue [Unknown]
  - Hip arthroplasty [Recovered/Resolved]
  - Physiotherapy [Recovered/Resolved]
  - Productive cough [Recovered/Resolved]
  - Impaired work ability [Recovered/Resolved]
  - Product lot number issue [Unknown]
